FAERS Safety Report 23922906 (Version 1)
Quarter: 2024Q2

REPORT INFORMATION
  Report Type: Spontaneous
  Country: FR (occurrence: FR)
  Receive Date: 20240531
  Receipt Date: 20240531
  Transmission Date: 20240716
  Serious: Yes (Hospitalization, Other)
  Sender: FDA-Public Use
  Company Number: FR-AFSSAPS-PO2024000559

PATIENT
  Age: 34 Year
  Sex: Female
  Weight: 113 kg

DRUGS (5)
  1. HYDROCORTISONE [Suspect]
     Active Substance: HYDROCORTISONE
     Indication: Metastasis
     Dosage: UNK
     Route: 048
     Dates: start: 20240314
  2. PREDNISOLONE [Suspect]
     Active Substance: PREDNISOLONE
     Indication: Metastasis
     Dosage: UNK
     Route: 048
     Dates: start: 202202, end: 202204
  3. PREDNISOLONE [Suspect]
     Active Substance: PREDNISOLONE
     Dosage: UNK
     Route: 048
     Dates: start: 20230731
  4. METHYLPREDNISOLONE [Suspect]
     Active Substance: METHYLPREDNISOLONE
     Indication: Metastasis
     Dosage: 150 MILLIGRAM, ONCE A DAY
     Route: 042
     Dates: start: 20220209, end: 202202
  5. METHYLPREDNISOLONE [Suspect]
     Active Substance: METHYLPREDNISOLONE
     Dosage: 60 MILLIGRAM, 3 TIMES A DAY
     Route: 042
     Dates: start: 20230620, end: 20230731

REACTIONS (2)
  - Steroid diabetes [Not Recovered/Not Resolved]
  - Osteonecrosis [Not Recovered/Not Resolved]

NARRATIVE: CASE EVENT DATE: 20230728
